FAERS Safety Report 13363974 (Version 2)
Quarter: 2017Q1

REPORT INFORMATION
  Report Type: Report from Study
  Country: BR (occurrence: BR)
  Receive Date: 20170323
  Receipt Date: 20170324
  Transmission Date: 20170429
  Serious: Yes (Death, Hospitalization)
  Sender: FDA-Public Use
  Company Number: PHHY2017BR042967

PATIENT
  Sex: Male

DRUGS (1)
  1. EXJADE [Suspect]
     Active Substance: DEFERASIROX
     Indication: FOETAL EXPOSURE DURING PREGNANCY
     Dosage: 1500 MG, UNK
     Route: 050

REACTIONS (5)
  - Bone disorder [Unknown]
  - Foetal exposure during pregnancy [Unknown]
  - Death [Fatal]
  - Cyanosis [Unknown]
  - Premature baby [Unknown]
